FAERS Safety Report 11815202 (Version 1)
Quarter: 2015Q4

REPORT INFORMATION
  Report Type: Spontaneous
  Country: US (occurrence: US)
  Receive Date: 20151209
  Receipt Date: 20151209
  Transmission Date: 20160305
  Serious: No
  Sender: FDA-Public Use
  Company Number: US-SA-2015SA180696

PATIENT
  Age: 68 Year
  Sex: Female

DRUGS (6)
  1. TOUJEO [Suspect]
     Active Substance: INSULIN GLARGINE
     Indication: TYPE 2 DIABETES MELLITUS
     Dosage: 3 WEEKS- 1MONTH DOSE:50 UNIT(S)
     Route: 065
     Dates: start: 2015, end: 2015
  2. TOUJEO [Suspect]
     Active Substance: INSULIN GLARGINE
     Indication: TYPE 2 DIABETES MELLITUS
     Dosage: 3 WEEKS- 1MONTH DOSE:47 UNIT(S)
     Route: 065
     Dates: start: 2015, end: 2015
  3. NOVOLOG [Concomitant]
     Active Substance: INSULIN ASPART
     Dosage: ON A SLIDING SCALE BEFORE HER MEALS.
  4. TOUJEO [Suspect]
     Active Substance: INSULIN GLARGINE
     Indication: TYPE 2 DIABETES MELLITUS
     Dosage: 3 WEEKS- 1MONTH DOSE:45 UNIT(S)
     Route: 065
     Dates: start: 201510
  5. TOUJEO [Suspect]
     Active Substance: INSULIN GLARGINE
     Indication: TYPE 2 DIABETES MELLITUS
     Dosage: 3 WEEKS- 1MONTH DOSE:55 UNIT(S)
     Route: 065
     Dates: start: 2015, end: 2015
  6. SOLOSTAR [Concomitant]
     Active Substance: DEVICE
     Indication: TYPE 2 DIABETES MELLITUS
     Dates: start: 201510

REACTIONS (1)
  - Blood glucose increased [Unknown]

NARRATIVE: CASE EVENT DATE: 2015
